FAERS Safety Report 25428638 (Version 1)
Quarter: 2025Q2

REPORT INFORMATION
  Report Type: Spontaneous
  Country: US (occurrence: US)
  Receive Date: 20250612
  Receipt Date: 20250612
  Transmission Date: 20250717
  Serious: Yes (Other)
  Sender: ABBVIE
  Company Number: US-ABBVIE-6319240

PATIENT
  Age: 71 Year
  Sex: Male
  Weight: 91 kg

DRUGS (10)
  1. DIVALPROEX SODIUM [Suspect]
     Active Substance: DIVALPROEX SODIUM
     Indication: Bipolar I disorder
     Route: 048
     Dates: start: 20250417
  2. BUPROPION [Concomitant]
     Active Substance: BUPROPION
     Indication: Bipolar I disorder
     Route: 048
     Dates: start: 20250201
  3. AMLODIPINE [Concomitant]
     Active Substance: AMLODIPINE BESYLATE
     Indication: Hypertension
     Route: 048
     Dates: start: 2010
  4. PERINDOPRIL [Concomitant]
     Active Substance: PERINDOPRIL
     Indication: Hypertension
     Route: 048
     Dates: start: 2010
  5. MELATONIN [Concomitant]
     Active Substance: MELATONIN
     Indication: Sleep disorder
     Route: 048
     Dates: start: 20250404
  6. MEMANTINE [Concomitant]
     Active Substance: MEMANTINE
     Indication: Bipolar I disorder
     Route: 048
     Dates: start: 2011
  7. ZOPICLONE [Concomitant]
     Active Substance: ZOPICLONE
     Indication: Insomnia
     Route: 048
     Dates: start: 20240729
  8. OLANZAPINE [Concomitant]
     Active Substance: OLANZAPINE
     Indication: Bipolar I disorder
     Route: 048
     Dates: start: 20250506
  9. LAMOTRIGINE [Concomitant]
     Active Substance: LAMOTRIGINE
     Indication: Bipolar I disorder
     Route: 048
     Dates: start: 20250605
  10. LAMOTRIGINE [Concomitant]
     Active Substance: LAMOTRIGINE
     Indication: Bipolar I disorder
     Route: 048
     Dates: start: 200906, end: 20250307

REACTIONS (1)
  - Product ineffective [Unknown]
